FAERS Safety Report 6792816-1 (Version None)
Quarter: 2010Q2

REPORT INFORMATION
  Report Type: 
  Country: None (occurrence: None)
  Receive Date: 20100624
  Receipt Date: 20081007
  Transmission Date: 20101027
  Serious: No
  Sender: FDA-Public Use
  Company Number: US-PFIZER INC-2008084561

PATIENT
  Age: 25 Year
  Sex: Female
  Weight: 59 kg

DRUGS (2)
  1. DEPO-PROVERA SUSPENSION/INJ [Suspect]
     Indication: CONTRACEPTION
     Dates: start: 20080813
  2. PLAN B [Suspect]
     Indication: CONTRACEPTION
     Route: 048
     Dates: start: 20080813, end: 20080814

REACTIONS (4)
  - HOT FLUSH [None]
  - MALAISE [None]
  - MENSTRUATION IRREGULAR [None]
  - VOMITING [None]
